FAERS Safety Report 13438325 (Version 1)
Quarter: 2017Q2

REPORT INFORMATION
  Report Type: Spontaneous
  Country: US (occurrence: US)
  Receive Date: 20170412
  Receipt Date: 20170412
  Transmission Date: 20170830
  Serious: No
  Sender: FDA-Public Use
  Company Number: US-SA-2017SA026716

PATIENT

DRUGS (1)
  1. ALLEGRA ALLERGY [Suspect]
     Active Substance: FEXOFENADINE HYDROCHLORIDE
     Dosage: DRUG WAS TAKEN AT 4PM YESTERDAY
     Route: 048

REACTIONS (3)
  - Rhinorrhoea [Unknown]
  - Drug ineffective [Unknown]
  - Lacrimation increased [Unknown]
